FAERS Safety Report 11497221 (Version 1)
Quarter: 2015Q3

REPORT INFORMATION
  Report Type: Spontaneous
  Country: BR (occurrence: BR)
  Receive Date: 20150911
  Receipt Date: 20150911
  Transmission Date: 20151125
  Serious: Yes (Other)
  Sender: FDA-Public Use
  Company Number: PHHY2015BR110348

PATIENT
  Sex: Male

DRUGS (1)
  1. STARFORM [Suspect]
     Active Substance: METFORMIN\NATEGLINIDE
     Indication: PRODUCT USED FOR UNKNOWN INDICATION
     Dosage: 3 DF, QD
     Route: 065

REACTIONS (2)
  - Blood glucose increased [Unknown]
  - Coronary artery occlusion [Unknown]
